FAERS Safety Report 8361576-5 (Version None)
Quarter: 2012Q2

REPORT INFORMATION
  Report Type: 
  Country: None (occurrence: None)
  Receive Date: 20120515
  Receipt Date: 20120511
  Transmission Date: 20120825
  Serious: Yes (Hospitalization)
  Sender: FDA-Public Use
  Company Number: US-PFIZER INC-2012115795

PATIENT
  Sex: Female
  Weight: 76.644 kg

DRUGS (7)
  1. LIPITOR [Suspect]
     Dosage: 20 MG, DAILY
     Route: 048
     Dates: start: 20120101
  2. LIPITOR [Suspect]
     Dosage: UNK
     Route: 048
  3. LISINOPRIL [Concomitant]
     Indication: HYPERTENSION
     Dosage: 10 MG, 1X/DAY
  4. LASIX [Concomitant]
     Indication: CARDIAC DISORDER
     Dosage: 80 MG, 2X/DAY
  5. LIPITOR [Suspect]
     Indication: BLOOD CHOLESTEROL INCREASED
     Dosage: UNK
     Route: 048
     Dates: start: 19930101, end: 19980101
  6. PLAVIX [Concomitant]
     Indication: ANGINA PECTORIS
     Dosage: 40 MG, 2X/DAY
  7. TRICOR [Concomitant]
     Indication: CARDIAC DISORDER
     Dosage: 145 MG, 1X/DAY

REACTIONS (3)
  - CORONARY ARTERIAL STENT INSERTION [None]
  - BLOOD CHOLESTEROL INCREASED [None]
  - CARDIAC DISORDER [None]
